FAERS Safety Report 7197225-1 (Version None)
Quarter: 2010Q4

REPORT INFORMATION
  Report Type: 
  Country: None (occurrence: None)
  Receive Date: 20101224
  Receipt Date: 20101215
  Transmission Date: 20110411
  Serious: Yes (Life-Threatening)
  Sender: FDA-Public Use
  Company Number: IT-BRISTOL-MYERS SQUIBB COMPANY-15296718

PATIENT
  Age: 61 Year
  Sex: Female

DRUGS (8)
  1. METFORMIN HCL [Suspect]
     Indication: DIABETES MELLITUS
     Route: 048
     Dates: start: 20040101, end: 20100827
  2. CARDIOASPIRIN [Concomitant]
  3. ROSIGLITAZONE MALEATE [Concomitant]
  4. CLONIDINE HCL [Concomitant]
  5. SIMVASTATIN [Concomitant]
  6. VALSARTAN + AMLODIPINE [Concomitant]
  7. BROTIZOLAM [Concomitant]
  8. OMEGA 3 FATTY ACID [Concomitant]

REACTIONS (4)
  - ANURIA [None]
  - HYPOCAPNIA [None]
  - HYPOTENSION [None]
  - METABOLIC ACIDOSIS [None]
